FAERS Safety Report 10744834 (Version 1)
Quarter: 2015Q1

REPORT INFORMATION
  Report Type: Spontaneous
  Country: US (occurrence: None)
  Receive Date: 20150120
  Receipt Date: 20150120
  Transmission Date: 20150721
  Serious: No
  Sender: FDA-Public Use
  Company Number: AEGR000860

PATIENT
  Age: 75 Year
  Sex: Female
  Weight: 107 kg

DRUGS (1)
  1. JUXTAPID [Suspect]
     Active Substance: LOMITAPIDE MESYLATE
     Indication: TYPE IIA HYPERLIPIDAEMIA
     Route: 048
     Dates: start: 20141014, end: 20141211

REACTIONS (5)
  - Weight decreased [None]
  - Product used for unknown indication [None]
  - Diarrhoea [None]
  - Headache [None]
  - Drug dose omission [None]

NARRATIVE: CASE EVENT DATE: 20141014
